APPROVED DRUG PRODUCT: ALENDRONATE SODIUM
Active Ingredient: ALENDRONATE SODIUM
Strength: EQ 70MG BASE
Dosage Form/Route: TABLET;ORAL
Application: A076184 | Product #001
Applicant: TEVA PHARMACEUTICALS USA
Approved: Feb 6, 2008 | RLD: No | RS: No | Type: DISCN